FAERS Safety Report 20113202 (Version 1)
Quarter: 2021Q4

REPORT INFORMATION
  Report Type: Spontaneous
  Country: US (occurrence: None)
  Receive Date: 20211124
  Receipt Date: 20211124
  Transmission Date: 20220303
  Serious: Yes (Hospitalization)
  Sender: FDA-Public Use
  Company Number: None

PATIENT
  Age: 62 Year
  Sex: Female
  Weight: 92.25 kg

DRUGS (1)
  1. KEYTRUDA [Suspect]
     Active Substance: PEMBROLIZUMAB
     Indication: Metastases to central nervous system
     Dates: start: 20211005, end: 20211123

REACTIONS (6)
  - Nausea [None]
  - Catheter site swelling [None]
  - Back pain [None]
  - Vision blurred [None]
  - Mobility decreased [None]
  - Monoplegia [None]

NARRATIVE: CASE EVENT DATE: 20211123
